FAERS Safety Report 11156539 (Version 3)
Quarter: 2015Q3

REPORT INFORMATION
  Report Type: Spontaneous
  Country: US (occurrence: US)
  Receive Date: 20150602
  Receipt Date: 20150827
  Transmission Date: 20151125
  Serious: Yes (Hospitalization, Other)
  Sender: FDA-Public Use
  Company Number: US-009507513-1505USA015373

PATIENT
  Age: 94 Year
  Sex: Female
  Weight: 48.53 kg

DRUGS (3)
  1. METOPROLOL SUCCINATE. [Concomitant]
     Active Substance: METOPROLOL SUCCINATE
     Dosage: 25 MG DAILY
  2. BELSOMRA [Suspect]
     Active Substance: SUVOREXANT
     Dosage: 5 MG, QD
     Route: 048
     Dates: start: 20150508, end: 20150513
  3. BELSOMRA [Suspect]
     Active Substance: SUVOREXANT
     Indication: INSOMNIA
     Dosage: 10 MG, QD
     Route: 048
     Dates: start: 20150506, end: 20150507

REACTIONS (10)
  - Mental status changes [Unknown]
  - Bradycardia [Unknown]
  - Hypertension [Unknown]
  - Incontinence [Recovered/Resolved]
  - Hypersomnia [Recovered/Resolved]
  - Wrong technique in product usage process [Unknown]
  - Cerebrovascular accident [Unknown]
  - Disturbance in attention [Recovered/Resolved]
  - Somnolence [Unknown]
  - Conjunctivitis [Unknown]

NARRATIVE: CASE EVENT DATE: 2015
